FAERS Safety Report 22055506 (Version 1)
Quarter: 2023Q1

REPORT INFORMATION
  Report Type: Report from Study
  Country: US (occurrence: US)
  Receive Date: 20230302
  Receipt Date: 20230302
  Transmission Date: 20230418
  Serious: Yes (Other)
  Sender: FDA-Public Use
  Company Number: US-TEVA-2023-US-2859193

PATIENT
  Age: 64 Year
  Sex: Male

DRUGS (2)
  1. AUSTEDO [Suspect]
     Active Substance: DEUTETRABENAZINE
     Indication: Tardive dyskinesia
     Dosage: 18 MILLIGRAM DAILY;
     Route: 048
     Dates: start: 20230212, end: 202302
  2. AUSTEDO [Suspect]
     Active Substance: DEUTETRABENAZINE
     Route: 048

REACTIONS (2)
  - Condition aggravated [Unknown]
  - Grunting [Unknown]

NARRATIVE: CASE EVENT DATE: 20230201
